FAERS Safety Report 7223445-3 (Version None)
Quarter: 2011Q1

REPORT INFORMATION
  Report Type: 
  Country: None (occurrence: None)
  Receive Date: 20110112
  Receipt Date: 20100702
  Transmission Date: 20110831
  Serious: No
  Sender: FDA-Public Use
  Company Number: US-ALLERGAN-1008675US

PATIENT
  Age: 73 Year
  Sex: Male

DRUGS (3)
  1. GENTEAL [Concomitant]
     Indication: DRY EYE
     Dosage: 2 GTT, BID
     Route: 047
  2. RESTASIS [Suspect]
     Indication: DRY EYE
     Dosage: 2 GTT, BID
     Route: 047
  3. GENTEAL EYE LUBRICANT [Concomitant]
     Indication: DRY EYE
     Dosage: UNK
     Route: 047

REACTIONS (3)
  - VISION BLURRED [None]
  - EYE PRURITUS [None]
  - OCULAR HYPERAEMIA [None]
